FAERS Safety Report 8096990-9 (Version None)
Quarter: 2012Q1

REPORT INFORMATION
  Report Type: 
  Country: None (occurrence: None)
  Receive Date: 20120129
  Receipt Date: 20111202
  Transmission Date: 20120608
  Serious: No
  Sender: FDA-Public Use
  Company Number: US-ABBOTT-11P-163-0880768-00

PATIENT
  Age: 57 Year
  Sex: Female

DRUGS (9)
  1. HUMIRA [Suspect]
     Indication: RHEUMATOID ARTHRITIS
     Dates: start: 20110601
  2. HYDROXYCHLOROQUINE SULFATE [Concomitant]
     Indication: ARTHRITIS
  3. OSCAL WITH D [Concomitant]
     Indication: MEDICAL DIET
  4. ATENOLOL [Concomitant]
     Indication: BLOOD PRESSURE
  5. CENTRUM [Concomitant]
     Indication: MEDICAL DIET
  6. PREDNISONE TAB [Concomitant]
     Indication: ARTHRITIS
  7. CADUET [Concomitant]
     Indication: BLOOD CHOLESTEROL
  8. CADUET [Concomitant]
     Indication: BLOOD PRESSURE
     Dosage: 5/10MG DAILY
  9. TRIAMTERENE [Concomitant]
     Indication: BLOOD PRESSURE

REACTIONS (8)
  - FATIGUE [None]
  - ORAL HERPES [None]
  - LIP BLISTER [None]
  - LIP SWELLING [None]
  - OEDEMA PERIPHERAL [None]
  - WEIGHT INCREASED [None]
  - ARTHRALGIA [None]
  - LIP PAIN [None]
